FAERS Safety Report 23255442 (Version 1)
Quarter: 2023Q4

REPORT INFORMATION
  Report Type: Report from Study
  Country: JP (occurrence: JP)
  Receive Date: 20231203
  Receipt Date: 20231203
  Transmission Date: 20240109
  Serious: Yes (Life-Threatening, Hospitalization, Other)
  Sender: FDA-Public Use
  Company Number: JP-KYOWAKIRIN-2022AKK014964

PATIENT
  Age: 86 Year
  Sex: Female

DRUGS (45)
  1. DARBEPOETIN ALFA [Suspect]
     Active Substance: DARBEPOETIN ALFA
     Indication: Myelodysplastic syndrome
     Dosage: 240 MICROGRAM, QWK
     Route: 058
     Dates: start: 20190108, end: 20190327
  2. DARBEPOETIN ALFA [Suspect]
     Active Substance: DARBEPOETIN ALFA
     Dosage: 240 MICROGRAM, QWK
     Route: 058
     Dates: start: 20180209, end: 20180216
  3. DARBEPOETIN ALFA [Suspect]
     Active Substance: DARBEPOETIN ALFA
     Dosage: 240 MICROGRAM
     Route: 058
     Dates: start: 20180309, end: 20180309
  4. DARBEPOETIN ALFA [Suspect]
     Active Substance: DARBEPOETIN ALFA
     Dosage: 240 MICROGRAM, QWK
     Route: 058
     Dates: start: 20180327, end: 20180403
  5. DARBEPOETIN ALFA [Suspect]
     Active Substance: DARBEPOETIN ALFA
     Dosage: 240 MICROGRAM, QWK
     Route: 058
     Dates: start: 20180726, end: 20180816
  6. DARBEPOETIN ALFA [Suspect]
     Active Substance: DARBEPOETIN ALFA
     Dosage: 240 MICROGRAM
     Route: 058
     Dates: start: 20180910, end: 20180910
  7. DARBEPOETIN ALFA [Suspect]
     Active Substance: DARBEPOETIN ALFA
     Dosage: 240 MICROGRAM
     Route: 058
     Dates: start: 20190410, end: 20190424
  8. DARBEPOETIN ALFA [Suspect]
     Active Substance: DARBEPOETIN ALFA
     Dosage: 240 MICROGRAM
     Route: 058
     Dates: start: 20190501, end: 20190501
  9. DARBEPOETIN ALFA [Suspect]
     Active Substance: DARBEPOETIN ALFA
     Dosage: 240 MICROGRAM
     Route: 058
     Dates: start: 20190509, end: 20190509
  10. DARBEPOETIN ALFA [Suspect]
     Active Substance: DARBEPOETIN ALFA
     Dosage: 240 MICROGRAM, QWK
     Route: 058
     Dates: start: 20190529, end: 20190605
  11. DARBEPOETIN ALFA [Suspect]
     Active Substance: DARBEPOETIN ALFA
     Dosage: 240 MICROGRAM, QWK
     Route: 058
     Dates: start: 20190729, end: 20190813
  12. DARBEPOETIN ALFA [Suspect]
     Active Substance: DARBEPOETIN ALFA
     Dosage: 240 MICROGRAM
     Route: 058
     Dates: start: 20190903, end: 20190903
  13. DARBEPOETIN ALFA [Suspect]
     Active Substance: DARBEPOETIN ALFA
     Dosage: 240 MICROGRAM, QWK
     Route: 058
     Dates: start: 20191008, end: 20191015
  14. DARBEPOETIN ALFA [Suspect]
     Active Substance: DARBEPOETIN ALFA
     Dosage: 240 MICROGRAM, QWK
     Route: 058
     Dates: start: 20191105, end: 20191113
  15. DARBEPOETIN ALFA [Suspect]
     Active Substance: DARBEPOETIN ALFA
     Dosage: 240 MICROGRAM, QWK
     Route: 058
     Dates: start: 20200408, end: 20200422
  16. DARBEPOETIN ALFA [Suspect]
     Active Substance: DARBEPOETIN ALFA
     Dosage: 240 MICROGRAM, QWK
     Route: 058
     Dates: start: 20200720, end: 20200819
  17. DARBEPOETIN ALFA [Suspect]
     Active Substance: DARBEPOETIN ALFA
     Dosage: 240 MICROGRAM
     Route: 058
     Dates: start: 20200916, end: 20200916
  18. DARBEPOETIN ALFA [Suspect]
     Active Substance: DARBEPOETIN ALFA
     Dosage: 240 MICROGRAM
     Route: 058
     Dates: start: 20210108, end: 20210108
  19. DARBEPOETIN ALFA [Suspect]
     Active Substance: DARBEPOETIN ALFA
     Dosage: 240 MICROGRAM
     Route: 058
     Dates: start: 20210115, end: 20210115
  20. DARBEPOETIN ALFA [Suspect]
     Active Substance: DARBEPOETIN ALFA
     Dosage: 240 MICROGRAM, QWK, 240 UG, 1X/WEEK
     Route: 058
     Dates: start: 20210629, end: 20210713
  21. DARBEPOETIN ALFA [Suspect]
     Active Substance: DARBEPOETIN ALFA
     Dosage: 240 MICROGRAM
     Route: 058
     Dates: start: 20211027, end: 20211027
  22. DARBEPOETIN ALFA [Suspect]
     Active Substance: DARBEPOETIN ALFA
     Dosage: 240 MICROGRAM
     Route: 058
     Dates: start: 20211124
  23. DENOSUMAB [Concomitant]
     Active Substance: DENOSUMAB
     Indication: Osteoporosis
     Dosage: 60 MILLIGRAM
     Route: 065
     Dates: start: 20200714
  24. VIDAZA [Concomitant]
     Active Substance: AZACITIDINE
     Indication: Myelodysplastic syndrome
     Dosage: 87-89 MG
     Route: 065
     Dates: start: 20180207
  25. DONEPEZIL HYDROCHLORIDE [Concomitant]
     Active Substance: DONEPEZIL HYDROCHLORIDE
     Indication: Dementia
     Dosage: 3-5 MG
     Route: 048
     Dates: end: 20200414
  26. ATORVASTATIN [Concomitant]
     Active Substance: ATORVASTATIN
     Indication: Hypercholesterolaemia
     Dosage: 5 MILLIGRAM
     Route: 048
  27. CILOSTAZOL [Concomitant]
     Active Substance: CILOSTAZOL
     Indication: Peripheral arterial occlusive disease
     Dosage: 100 MILLIGRAM
     Route: 048
  28. TICLOPIDINE HYDROCHLORIDE [Concomitant]
     Active Substance: TICLOPIDINE HYDROCHLORIDE
     Indication: Pain in extremity
     Dosage: 100 MILLIGRAM
     Route: 048
     Dates: start: 20190225, end: 20190304
  29. BONVIVA PLUS [Concomitant]
     Indication: Osteoporosis
     Dosage: 1 MG/MONTH
     Route: 065
     Dates: start: 20180403, end: 20200616
  30. SITAFLOXACIN [Concomitant]
     Active Substance: SITAFLOXACIN
     Indication: Gastroenteritis Escherichia coli
     Dosage: 50-100MG
     Route: 048
     Dates: start: 20190301, end: 20190314
  31. ZINC [Concomitant]
     Active Substance: PYRITHIONE ZINC\ZINC\ZINC CHLORIDE
     Indication: Blood zinc decreased
     Dosage: 100 MILLIGRAM
     Route: 048
     Dates: start: 20190313, end: 20190410
  32. LOPERAMIDE [Concomitant]
     Active Substance: LOPERAMIDE
     Indication: Gastroenteritis Escherichia coli
     Dosage: 2 MILLIGRAM
     Route: 048
     Dates: start: 20190325, end: 20190326
  33. MIYA-BM [Concomitant]
     Active Substance: CLOSTRIDIUM BUTYRICUM SPORES STRAIN M-55
     Indication: Gastroenteritis Escherichia coli
     Dosage: 120 MILLIGRAM
     Route: 048
     Dates: start: 20190224
  34. MIYA-BM [Concomitant]
     Active Substance: CLOSTRIDIUM BUTYRICUM SPORES STRAIN M-55
     Indication: Constipation
     Dosage: UNK
  35. BUTYLSCOPORAMINE [Concomitant]
     Indication: Gastroenteritis Escherichia coli
     Dosage: 5 MILLIGRAM
     Route: 065
     Dates: start: 20190224, end: 20190420
  36. CHICHINA [Concomitant]
     Indication: Gastroenteritis Escherichia coli
     Dosage: 100 MILLIGRAM
     Route: 065
     Dates: start: 20190224, end: 20190326
  37. TRANEXAMIC ACID [Concomitant]
     Active Substance: TRANEXAMIC ACID
     Indication: Gastroenteritis Escherichia coli
     Dosage: 1 GRAM
     Route: 065
     Dates: start: 20190224, end: 20190326
  38. FOSFOMYCIN SODIUM [Concomitant]
     Active Substance: FOSFOMYCIN SODIUM
     Indication: Gastroenteritis Escherichia coli
     Dosage: 4 GRAM
     Route: 065
     Dates: start: 20190228, end: 20190313
  39. THROMBOMODULIN ALFA [Concomitant]
     Active Substance: THROMBOMODULIN ALFA
     Indication: Disseminated intravascular coagulation
     Dosage: 14080 INTERNATIONAL UNIT
     Route: 065
     Dates: start: 20190228, end: 20190309
  40. MEROPENEM [Concomitant]
     Active Substance: MEROPENEM
     Indication: Gastroenteritis Escherichia coli
     Dosage: 2 GRAM
     Route: 065
     Dates: start: 20190328, end: 20190410
  41. Acinon [Concomitant]
     Indication: Gastrooesophageal reflux disease
     Dosage: 150 MILLIGRAM
     Route: 048
     Dates: end: 20200212
  42. Fesin [Concomitant]
     Indication: Iron deficiency anaemia
     Dosage: 40 MILLIGRAM
     Route: 065
     Dates: start: 20190329, end: 20190406
  43. MEMANTINE HYDROCHLORIDE [Concomitant]
     Active Substance: MEMANTINE HYDROCHLORIDE
     Indication: Dementia Alzheimer^s type
     Dosage: 5 MILLIGRAM
     Route: 048
     Dates: start: 20200418
  44. ETIZOLAM [Concomitant]
     Active Substance: ETIZOLAM
     Indication: Dementia Alzheimer^s type
     Dosage: 0.5 MILLIGRAM
     Route: 048
     Dates: start: 20200720
  45. HERBALS [Concomitant]
     Active Substance: HERBALS
     Indication: Dementia Alzheimer^s type
     Dosage: 7.5 GRAM
     Route: 048
     Dates: start: 20200408

REACTIONS (4)
  - Iron deficiency anaemia [Recovered/Resolved]
  - Gastroenteritis Escherichia coli [Recovered/Resolved]
  - Disseminated intravascular coagulation [Recovered/Resolved]
  - Blood zinc decreased [Recovered/Resolved]

NARRATIVE: CASE EVENT DATE: 20190224
